FAERS Safety Report 4873622-1 (Version None)
Quarter: 2005Q4

REPORT INFORMATION
  Report Type: 
  Country: None (occurrence: None)
  Receive Date: 20051201
  Receipt Date: 20050822
  Transmission Date: 20060501
  Serious: No
  Sender: FDA-Public Use
  Company Number: 2005PV001498

PATIENT
  Age: 51 Year
  Sex: Female
  Weight: 127.0072 kg

DRUGS (3)
  1. BYETTA [Suspect]
     Indication: DIABETES MELLITUS NON-INSULIN-DEPENDENT
     Dosage: 10 MCG; 5 MCG :BID, SC
     Route: 058
     Dates: start: 20050501, end: 20050801
  2. BYETTA [Suspect]
     Indication: DIABETES MELLITUS NON-INSULIN-DEPENDENT
     Dosage: 10 MCG; 5 MCG :BID, SC
     Route: 058
     Dates: start: 20050801, end: 20050801
  3. GLUCOPHAGE [Concomitant]

REACTIONS (2)
  - DYSPEPSIA [None]
  - PALPITATIONS [None]
